FAERS Safety Report 5179092-0 (Version None)
Quarter: 2006Q4

REPORT INFORMATION
  Report Type: 
  Country: None (occurrence: None)
  Receive Date: 20061219
  Receipt Date: 20061206
  Transmission Date: 20070319
  Serious: Yes (Hospitalization, Other)
  Sender: FDA-Public Use
  Company Number: PHBS2006JP19003

PATIENT
  Age: 9 Year
  Sex: Male

DRUGS (5)
  1. CYCLOSPORINE [Suspect]
     Indication: FOCAL GLOMERULOSCLEROSIS
     Dosage: 5 MG/KG/DAY
  2. CYCLOPHOSPHAMIDE [Concomitant]
  3. MIZORIBINE [Concomitant]
  4. METHYLPREDNISOLONE [Concomitant]
  5. PREDNISOLONE [Suspect]
     Dosage: 1 MG/KG/DAY
     Route: 048

REACTIONS (7)
  - BODY HEIGHT BELOW NORMAL [None]
  - CATARACT [None]
  - DRUG RESISTANCE [None]
  - FOCAL GLOMERULOSCLEROSIS [None]
  - OBESITY [None]
  - OSTEOPOROSIS [None]
  - PROTEINURIA [None]
